FAERS Safety Report 12243079 (Version 1)
Quarter: 2016Q2

REPORT INFORMATION
  Report Type: Spontaneous
  Country: US (occurrence: US)
  Receive Date: 20160406
  Receipt Date: 20160406
  Transmission Date: 20160815
  Serious: No
  Sender: FDA-Public Use
  Company Number: US-SA-2015SA070249

PATIENT
  Age: 21 Year
  Sex: Male

DRUGS (2)
  1. ALLEGRA-D [Suspect]
     Active Substance: FEXOFENADINE\PSEUDOEPHEDRINE
     Indication: NASAL CONGESTION
     Dosage: DOSE:180MG/240 MG
     Route: 048
     Dates: start: 201505, end: 201505
  2. ALLEGRA-D [Suspect]
     Active Substance: FEXOFENADINE\PSEUDOEPHEDRINE
     Indication: NASOPHARYNGITIS
     Dosage: DOSE:180MG/240 MG
     Route: 048
     Dates: start: 201505, end: 201505

REACTIONS (2)
  - Medication residue present [Unknown]
  - Drug ineffective [Unknown]

NARRATIVE: CASE EVENT DATE: 201505
